FAERS Safety Report 8345670-0 (Version None)
Quarter: 2012Q2

REPORT INFORMATION
  Report Type: 
  Country: None (occurrence: None)
  Receive Date: 20120508
  Receipt Date: 20120430
  Transmission Date: 20120825
  Serious: Yes (Congenital Anomaly, Other)
  Sender: FDA-Public Use
  Company Number: US-RB-037997-12

PATIENT
  Sex: Male

DRUGS (16)
  1. ALBUTEROL [Suspect]
     Indication: BRONCHITIS
     Dosage: TWO PUFFS EVERY 4 HOURS
     Route: 064
  2. HUMULIN PEN [Suspect]
     Indication: GESTATIONAL DIABETES
     Dosage: UNKNOWN DOSE
     Route: 064
  3. ONDANSETRON [Suspect]
     Indication: NAUSEA
     Route: 064
  4. HUMALOG [Suspect]
     Dosage: SLIDING UNITS
     Route: 063
  5. ALBUTEROL [Suspect]
     Dosage: 2 PUFFS EVERY 4 HOURS
     Route: 063
  6. LAMICTAL [Suspect]
     Indication: BIPOLAR DISORDER
     Dosage: 100 MG TO 150 MG DAILY
     Route: 063
  7. SUBUTEX [Suspect]
     Dosage: UNIT DOSE UNKNOWN
     Route: 064
     Dates: start: 20111101
  8. NEEVO DHA [Suspect]
     Indication: PREGNANCY
     Route: 064
  9. HUMALOG [Suspect]
     Indication: GESTATIONAL DIABETES
     Dosage: UNKNOWN DOSE
     Route: 064
  10. SUBUTEX [Suspect]
     Route: 064
     Dates: end: 20120228
  11. NEEVO DHA [Suspect]
     Dosage: 1 TABLET DAILY
     Route: 063
  12. ZOLPIDEM [Suspect]
     Route: 064
  13. ZOLPIDEM [Suspect]
     Indication: INSOMNIA
     Route: 063
  14. SUBUTEX [Suspect]
     Indication: DRUG DEPENDENCE
     Dosage: UNKNOWN DOSAGE DETAILS
     Route: 063
     Dates: start: 20120101
  15. HUMULIN PEN [Suspect]
     Dosage: 3 ML DAILY
     Route: 063
  16. LAMICTAL [Suspect]
     Indication: DEPRESSION
     Dosage: 100MG TO 150MG DAILY
     Route: 064

REACTIONS (3)
  - EXPOSURE DURING BREAST FEEDING [None]
  - CONGENITAL HEPATOBILIARY ANOMALY [None]
  - FOETAL EXPOSURE DURING PREGNANCY [None]
